FAERS Safety Report 17624718 (Version 1)
Quarter: 2020Q2

REPORT INFORMATION
  Report Type: Spontaneous
  Country: US (occurrence: US)
  Receive Date: 20200403
  Receipt Date: 20200403
  Transmission Date: 20200713
  Serious: No
  Sender: FDA-Public Use
  Company Number: US-009507513-2003USA010527

PATIENT
  Age: 34 Year
  Sex: Female

DRUGS (2)
  1. ETONOGESTREL (+) ETHINYL ESTRADIOL [Suspect]
     Active Substance: ETHINYL ESTRADIOL\ETONOGESTREL
     Dosage: UNK
     Route: 067
     Dates: start: 20200324, end: 20200327
  2. NUVARING [Suspect]
     Active Substance: ETHINYL ESTRADIOL\ETONOGESTREL
     Dosage: UNK
     Route: 067

REACTIONS (9)
  - Abdominal pain [Recovering/Resolving]
  - Mood altered [Recovering/Resolving]
  - Discomfort [Unknown]
  - Vaginal haemorrhage [Unknown]
  - Cervix enlargement [Not Recovered/Not Resolved]
  - Insomnia [Unknown]
  - Uterine cervix stenosis [Recovered/Resolved]
  - Fatigue [Unknown]
  - Gait disturbance [Unknown]

NARRATIVE: CASE EVENT DATE: 20200325
